FAERS Safety Report 6125162-X (Version None)
Quarter: 2009Q1

REPORT INFORMATION
  Report Type: 
  Country: None (occurrence: None)
  Receive Date: 20090318
  Receipt Date: 20090310
  Transmission Date: 20090719
  Serious: Yes (Other)
  Sender: FDA-Public Use
  Company Number: CHPA2009US06661

PATIENT
  Age: 83 Year
  Sex: Female
  Weight: 72.6 kg

DRUGS (2)
  1. GAS-X EXTRA STRENGTH SOFTGELS (NCH) (SIMETHICONE) SOFT FELATIN CAPSULE [Suspect]
     Indication: FLATULENCE
     Dosage: 250 MG, QD, ORAL
     Route: 048
  2. PEPTO-BISMOL (BISMUTH SUBSALICYLATE) [Suspect]
     Indication: FLATULENCE
     Dosage: 250 MG, QD, ORAL
     Route: 048

REACTIONS (2)
  - ANAL HAEMORRHAGE [None]
  - FAECES DISCOLOURED [None]
